FAERS Safety Report 7679465-8 (Version None)
Quarter: 2011Q3

REPORT INFORMATION
  Report Type: 
  Country: None (occurrence: None)
  Receive Date: 20110812
  Receipt Date: 20110812
  Transmission Date: 20111222
  Serious: Yes (Hospitalization, Other)
  Sender: FDA-Public Use
  Company Number: None

PATIENT
  Age: 60 Year
  Sex: Female
  Weight: 58.967 kg

DRUGS (1)
  1. BONIVA [Suspect]
     Indication: OSTEOPOROSIS
     Dosage: 1
     Route: 048
     Dates: start: 20110625, end: 20110625

REACTIONS (6)
  - HEART RATE INCREASED [None]
  - ACTIVITIES OF DAILY LIVING IMPAIRED [None]
  - GASTRITIS [None]
  - BLOOD PRESSURE DECREASED [None]
  - GASTROINTESTINAL FUNGAL INFECTION [None]
  - MALAISE [None]
